FAERS Safety Report 8299192-6 (Version None)
Quarter: 2012Q2

REPORT INFORMATION
  Report Type: 
  Country: None (occurrence: None)
  Receive Date: 20120419
  Receipt Date: 20120413
  Transmission Date: 20120825
  Serious: Yes (Other)
  Sender: FDA-Public Use
  Company Number: US-ACTELION-A-NJ2012-63855

PATIENT

DRUGS (1)
  1. TRACLEER [Suspect]
     Indication: PULMONARY ARTERIAL HYPERTENSION
     Dosage: UNK
     Route: 048
     Dates: start: 20100924

REACTIONS (4)
  - IN-STENT CORONARY ARTERY RESTENOSIS [None]
  - ASTHENIA [None]
  - ARTERIAL THERAPEUTIC PROCEDURE [None]
  - DYSPNOEA EXERTIONAL [None]
